FAERS Safety Report 9000904 (Version 1)
Quarter: 2013Q1

REPORT INFORMATION
  Report Type: Spontaneous
  Country: MX (occurrence: MX)
  Receive Date: 20130107
  Receipt Date: 20130107
  Transmission Date: 20140127
  Serious: Yes (Other)
  Sender: FDA-Public Use
  Company Number: PHHY2013MX001229

PATIENT
  Age: 85 Year
  Sex: Female

DRUGS (5)
  1. CO-DIOVAN [Suspect]
     Indication: HYPERTENSION
     Dosage: 1 TABLET DAILY
     Route: 048
     Dates: start: 200301
  2. ENCEPHABOL [Concomitant]
     Dosage: 1 DF DAILY
     Dates: start: 200602
  3. AKATINOL [Concomitant]
     Dosage: 1 DF DAILY
     Dates: start: 200401
  4. BI-EUGLUCON [Concomitant]
     Dosage: 2 DF DAILY
     Dates: start: 200301
  5. CITOX [Concomitant]
     Dosage: 1 DF DAILY
     Dates: start: 200401

REACTIONS (1)
  - Dementia Alzheimer^s type [Not Recovered/Not Resolved]
